FAERS Safety Report 19808130 (Version 8)
Quarter: 2022Q1

REPORT INFORMATION
  Report Type: Report from Study
  Country: CN (occurrence: CN)
  Receive Date: 20210908
  Receipt Date: 20220310
  Transmission Date: 20220423
  Serious: Yes (Life-Threatening, Hospitalization, Other)
  Sender: FDA-Public Use
  Company Number: CN-BRISTOL-MYERS SQUIBB COMPANY-BMS-2021-087984

PATIENT
  Age: 69 Year
  Sex: Male

DRUGS (5)
  1. NIVOLUMAB [Suspect]
     Active Substance: NIVOLUMAB
     Indication: Non-small cell lung cancer
     Dosage: 360 MILLIGRAM;3 CYCLES OF NEOADJUVANT TREATMENT
     Route: 042
     Dates: start: 20210324, end: 20210515
  2. NIVOLUMAB [Suspect]
     Active Substance: NIVOLUMAB
     Dosage: 360 MILLIGRAM; 2 CYCLES ADJUVANT THERAPY
     Route: 042
     Dates: start: 20210723
  3. PACLITAXEL [Suspect]
     Active Substance: PACLITAXEL
     Indication: Non-small cell lung cancer
     Dosage: DOSE CALCULATED ACCORDING TO BODY WEIGHT; 3 CYCLES OF NEOADJUVANT TREATMENT
     Route: 042
     Dates: start: 20210324, end: 20210515
  4. CARBOPLATIN [Suspect]
     Active Substance: CARBOPLATIN
     Indication: Non-small cell lung cancer
     Dosage: DOSE CALCULATED ACCORDING TO BODY WEIGHT; 3 CYCLES OF NEOADJUVANT TREATMENT
     Route: 042
     Dates: start: 20210324, end: 20210515
  5. HUMALOG [Concomitant]
     Active Substance: INSULIN LISPRO
     Indication: Type 2 diabetes mellitus
     Dosage: TID; 26U IN THE MORNING, 10U IN THE AFTERNOON AND 20U IN THE EVENING
     Route: 065
     Dates: start: 2006

REACTIONS (2)
  - Liver abscess [Not Recovered/Not Resolved]
  - Pancreatitis chronic [Unknown]

NARRATIVE: CASE EVENT DATE: 20210831
